FAERS Safety Report 7733573-1 (Version None)
Quarter: 2011Q3

REPORT INFORMATION
  Report Type: 
  Country: None (occurrence: None)
  Receive Date: 20110907
  Receipt Date: 20110824
  Transmission Date: 20111222
  Serious: Yes (Hospitalization, Other)
  Sender: FDA-Public Use
  Company Number: CA-ELI_LILLY_AND_COMPANY-CA201108007325

PATIENT
  Sex: Male

DRUGS (11)
  1. ZYPREXA [Suspect]
     Indication: SCHIZOAFFECTIVE DISORDER
     Dosage: 20 MG, EACH EVENING
     Dates: start: 19991019
  2. NITRAZEPAM [Concomitant]
  3. METHADONE HCL [Concomitant]
  4. ATIVAN [Concomitant]
  5. ZYPREXA [Suspect]
     Dosage: 10 MG, EACH EVENING
  6. ZYPREXA ZYDIS [Suspect]
     Indication: SCHIZOAFFECTIVE DISORDER
     Dosage: 30 MG, EACH EVENING
  7. ZOPICLONE [Concomitant]
  8. ZYPREXA [Suspect]
     Dosage: 15 MG, EACH EVENING
  9. STELAZINE [Concomitant]
  10. ZYPREXA ZYDIS [Suspect]
     Dosage: 40 MG, EACH EVENING
  11. WELLBUTRIN SR [Concomitant]

REACTIONS (14)
  - SKIN ULCER [None]
  - CHEST PAIN [None]
  - PANCREATITIS [None]
  - OVERDOSE [None]
  - MYOCARDIAL INFARCTION [None]
  - HYPERGLYCAEMIA [None]
  - CORONARY ARTERY DISEASE [None]
  - HEPATITIS C [None]
  - DIABETIC NEUROPATHY [None]
  - MUSCULAR WEAKNESS [None]
  - THROMBOCYTOPENIA [None]
  - DIABETIC DERMOPATHY [None]
  - TYPE 2 DIABETES MELLITUS [None]
  - HYPERTENSION [None]
